FAERS Safety Report 6772786-2 (Version None)
Quarter: 2010Q2

REPORT INFORMATION
  Report Type: 
  Country: None (occurrence: None)
  Receive Date: 20100616
  Receipt Date: 20100603
  Transmission Date: 20101027
  Serious: Yes (Hospitalization, Other)
  Sender: FDA-Public Use
  Company Number: FR-ELI_LILLY_AND_COMPANY-FR201004002723

PATIENT
  Age: 82 Year
  Sex: Female

DRUGS (5)
  1. ZYPREXA [Suspect]
     Indication: DEPRESSION
     Dosage: UNK, UNK
     Route: 048
     Dates: end: 20100412
  2. NORSET [Concomitant]
     Dosage: UNK, UNKNOWN
  3. NORSET [Concomitant]
     Dosage: 15 MG, DAILY (1/D)
     Route: 048
  4. LIPANTHYL [Concomitant]
     Indication: HYPERCHOLESTEROLAEMIA
     Route: 048
  5. ZOLPIDEM [Concomitant]
     Route: 048

REACTIONS (3)
  - OFF LABEL USE [None]
  - PHLEBITIS [None]
  - PULMONARY EMBOLISM [None]
